FAERS Safety Report 5195828-7 (Version None)
Quarter: 2006Q4

REPORT INFORMATION
  Report Type: 
  Country: None (occurrence: None)
  Receive Date: 20061227
  Receipt Date: 20061214
  Transmission Date: 20070319
  Serious: Yes (Death)
  Sender: FDA-Public Use
  Company Number: US019037

PATIENT
  Sex: Female

DRUGS (3)
  1. ACTIQ [Suspect]
     Indication: BACK PAIN
  2. DILAUDID [Suspect]
  3. FENTANYL TRANSDERMAL SYSTEM [Suspect]

REACTIONS (1)
  - OVERDOSE [None]
